FAERS Safety Report 19057455 (Version 1)
Quarter: 2021Q1

REPORT INFORMATION
  Report Type: Other
  Country: US (occurrence: US)
  Receive Date: 20210324
  Receipt Date: 20210324
  Transmission Date: 20210420
  Serious: Yes (Death)
  Sender: FDA-Public Use
  Company Number: US-CHURCH + DWIGHT CO., INC.-2108413

PATIENT
  Sex: Male

DRUGS (1)
  1. UNKNOWN BRAND OF BENZOCAINE. [Suspect]
     Active Substance: BENZOCAINE
     Indication: ANALGESIC THERAPY
     Route: 048

REACTIONS (7)
  - Dyspnoea [Unknown]
  - Nausea [Unknown]
  - Death [Fatal]
  - Oral pain [Recovering/Resolving]
  - Pain in extremity [Unknown]
  - Swelling face [Not Recovered/Not Resolved]
  - Oral discomfort [Not Recovered/Not Resolved]

NARRATIVE: CASE EVENT DATE: 20201225
